FAERS Safety Report 9486244 (Version 3)
Quarter: 2013Q4

REPORT INFORMATION
  Report Type: Spontaneous
  Country: US (occurrence: US)
  Receive Date: 20130829
  Receipt Date: 20131022
  Transmission Date: 20140711
  Serious: Yes (Other)
  Sender: FDA-Public Use
  Company Number: US-PFIZER INC-2013248554

PATIENT
  Age: 49 Year
  Sex: Female

DRUGS (3)
  1. ENBREL [Suspect]
     Indication: RHEUMATOID ARTHRITIS
     Dosage: 25 MG, EVERY WEEK OR EVERY OTHER WEEK
     Dates: start: 20010101, end: 201204
  2. ENBREL [Suspect]
     Dosage: 25 MG, EVERY WEEK OR EVERY OTHER WEEK
     Dates: start: 201305
  3. FLUCONAZOLE [Suspect]
     Indication: COCCIDIOIDOMYCOSIS
     Dosage: UNK
     Route: 065

REACTIONS (14)
  - Coccidioidomycosis [Not Recovered/Not Resolved]
  - Arthropathy [Unknown]
  - Rheumatoid arthritis [Not Recovered/Not Resolved]
  - Alopecia [Recovered/Resolved]
  - Pyrexia [Recovered/Resolved]
  - Oropharyngeal pain [Recovered/Resolved]
  - Malaise [Recovered/Resolved]
  - Arthralgia [Not Recovered/Not Resolved]
  - Neck pain [Not Recovered/Not Resolved]
  - Vitamin D deficiency [Not Recovered/Not Resolved]
  - Bone swelling [Not Recovered/Not Resolved]
  - Joint swelling [Not Recovered/Not Resolved]
  - Pain [Not Recovered/Not Resolved]
  - Synovitis [Unknown]
